FAERS Safety Report 6046814-6 (Version None)
Quarter: 2009Q1

REPORT INFORMATION
  Report Type: 
  Country: None (occurrence: None)
  Receive Date: 20090122
  Receipt Date: 20090116
  Transmission Date: 20090719
  Serious: Yes (Life-Threatening)
  Sender: FDA-Public Use
  Company Number: A0764006A

PATIENT
  Age: 60 Year
  Sex: Female
  Weight: 75 kg

DRUGS (4)
  1. VALTREX [Suspect]
     Indication: DRUG USE FOR UNKNOWN INDICATION
     Dosage: 2G TWICE PER DAY
     Route: 048
  2. C.E.S [Concomitant]
     Route: 065
  3. ELTROXIN [Concomitant]
     Route: 065
  4. PROVERA [Concomitant]
     Route: 065

REACTIONS (3)
  - APLASTIC ANAEMIA [None]
  - LEUKOPENIA [None]
  - THROMBOCYTOPENIA [None]
